FAERS Safety Report 25963050 (Version 1)
Quarter: 2025Q4

REPORT INFORMATION
  Report Type: Spontaneous
  Country: US (occurrence: US)
  Receive Date: 20251027
  Receipt Date: 20251027
  Transmission Date: 20260117
  Serious: Yes (Other)
  Sender: CHEPLAPHARM
  Company Number: US-CHEPLA-2025012076

PATIENT
  Age: 78 Year
  Sex: Female

DRUGS (25)
  1. QUETIAPINE [Suspect]
     Active Substance: QUETIAPINE
     Indication: Product used for unknown indication
     Dosage: ONCE DAILY?DAILY DOSE: 12.5 MILLIGRAM
  2. NUPLAZID [Suspect]
     Active Substance: PIMAVANSERIN TARTRATE
     Indication: Parkinson^s disease psychosis
     Dosage: DAILY DOSE: 34 MILLIGRAM
     Route: 048
     Dates: start: 20250828
  3. NUPLAZID [Suspect]
     Active Substance: PIMAVANSERIN TARTRATE
     Indication: Parkinson^s disease
     Dosage: DAILY DOSE: 34 MILLIGRAM
     Route: 048
     Dates: start: 20250828
  4. NUPLAZID [Suspect]
     Active Substance: PIMAVANSERIN TARTRATE
     Indication: Parkinson^s disease psychosis
     Dosage: DAILY DOSE: 34 MILLIGRAM
     Route: 048
     Dates: start: 20250915, end: 20251001
  5. NUPLAZID [Suspect]
     Active Substance: PIMAVANSERIN TARTRATE
     Indication: Parkinson^s disease
     Dosage: DAILY DOSE: 34 MILLIGRAM
     Route: 048
     Dates: start: 20250915, end: 20251001
  6. NUPLAZID [Suspect]
     Active Substance: PIMAVANSERIN TARTRATE
     Indication: Parkinson^s disease psychosis
     Dosage: 34 MILLIGRAM QOD
     Route: 048
     Dates: start: 20250915, end: 20251001
  7. NUPLAZID [Suspect]
     Active Substance: PIMAVANSERIN TARTRATE
     Indication: Parkinson^s disease
     Dosage: 34 MILLIGRAM QOD
     Route: 048
     Dates: start: 20250915, end: 20251001
  8. RYTARY [Concomitant]
     Active Substance: CARBIDOPA\LEVODOPA
  9. AMANTADINE [Concomitant]
     Active Substance: AMANTADINE
  10. LOSARTAN [Concomitant]
     Active Substance: LOSARTAN
  11. PRAVASTATIN [Concomitant]
     Active Substance: PRAVASTATIN
  12. VITAMIN D3 [Concomitant]
     Active Substance: CHOLECALCIFEROL
  13. MELATONIN [Concomitant]
     Active Substance: MELATONIN
  14. PROTONIX [Concomitant]
     Active Substance: PANTOPRAZOLE SODIUM
  15. KEFLEX [Concomitant]
     Active Substance: CEPHALEXIN
  16. MYRBETRIQ [Concomitant]
     Active Substance: MIRABEGRON
  17. MAGNESIUM OXIDE [Concomitant]
     Active Substance: MAGNESIUM OXIDE
  18. CALCIUM PANTOTHENATE\CYANOCOBALAMIN\NIACINAMIDE\PYRIDOXINE HYDROCHLORI [Concomitant]
     Active Substance: CALCIUM PANTOTHENATE\CYANOCOBALAMIN\NIACINAMIDE\PYRIDOXINE HYDROCHLORIDE\RIBOFLAVIN\THIAMINE MONONIT
  19. ALBUTEROL SULFATE [Concomitant]
     Active Substance: ALBUTEROL SULFATE
  20. ARFORMOTEROL [Concomitant]
     Active Substance: ARFORMOTEROL
  21. PULMICORT TURBUHALER [Concomitant]
     Active Substance: BUDESONIDE
  22. MIRALAX [Concomitant]
     Active Substance: POLYETHYLENE GLYCOL 3350
  23. ELIQUIS [Concomitant]
     Active Substance: APIXABAN
  24. SINGULAIR [Concomitant]
     Active Substance: MONTELUKAST SODIUM
  25. HYDROCODONE BITARTRATE AND ACETAMINOPHEN [Concomitant]
     Active Substance: ACETAMINOPHEN\HYDROCODONE BITARTRATE

REACTIONS (7)
  - Hallucination [Not Recovered/Not Resolved]
  - Dyspepsia [Not Recovered/Not Resolved]
  - Insomnia [Not Recovered/Not Resolved]
  - Vomiting [Unknown]
  - Burning sensation [Unknown]
  - Nausea [Unknown]
  - Somnolence [Unknown]

NARRATIVE: CASE EVENT DATE: 20250915
